FAERS Safety Report 5266873-8 (Version None)
Quarter: 2007Q1

REPORT INFORMATION
  Report Type: 
  Country: None (occurrence: None)
  Receive Date: 20061213
  Receipt Date: 20020619
  Transmission Date: 20070707
  Serious: No
  Sender: FDA-Public Use
  Company Number: 2002UW04766

PATIENT
  Age: 58 Year
  Sex: Female
  Weight: 69.8539 kg

DRUGS (3)
  1. TAMOXIFEN CITRATE [Suspect]
     Indication: ADENOCARCINOMA
     Dates: start: 20010501, end: 20020201
  2. TAMOXIFEN CITRATE [Suspect]
     Indication: BREAST CANCER
     Dates: start: 20010501, end: 20020201
  3. TAMOXIFEN CITRATE [Suspect]
     Indication: BREAST CANCER IN SITU
     Dates: start: 20010501, end: 20020201

REACTIONS (2)
  - UTERINE NEOPLASM [None]
  - WEIGHT INCREASED [None]
